FAERS Safety Report 25131620 (Version 1)
Quarter: 2025Q1

REPORT INFORMATION
  Report Type: Spontaneous
  Country: CN (occurrence: CN)
  Receive Date: 20250327
  Receipt Date: 20250327
  Transmission Date: 20250409
  Serious: Yes (Other)
  Sender: PURDUE
  Company Number: CN-NAPPMUNDI-GBR-2025-0124396

PATIENT
  Age: 73 Year
  Sex: Male
  Weight: 57 kg

DRUGS (1)
  1. OXYCODONE HYDROCHLORIDE [Suspect]
     Active Substance: OXYCODONE HYDROCHLORIDE
     Indication: Cancer pain
     Dosage: 40 MILLIGRAM, BID
     Route: 048
     Dates: start: 20250309

REACTIONS (2)
  - Dysuria [Recovering/Resolving]
  - Bladder dilatation [Recovering/Resolving]

NARRATIVE: CASE EVENT DATE: 20250309
